FAERS Safety Report 5717783-0 (Version None)
Quarter: 2008Q2

REPORT INFORMATION
  Report Type: 
  Country: None (occurrence: None)
  Receive Date: 20080425
  Receipt Date: 20080226
  Transmission Date: 20081010
  Serious: No
  Sender: FDA-Public Use
  Company Number: US-ABBOTT-08P-163-0439827-00

PATIENT
  Sex: Female

DRUGS (1)
  1. ERYTHROMYCIN STEARATE [Suspect]
     Indication: SKIN DISORDER
     Route: 058
     Dates: start: 20080223

REACTIONS (1)
  - PYREXIA [None]
